FAERS Safety Report 20451909 (Version 3)
Quarter: 2022Q2

REPORT INFORMATION
  Report Type: Other
  Country: CO (occurrence: CO)
  Receive Date: 20220209
  Receipt Date: 20220411
  Transmission Date: 20220721
  Serious: Yes (Hospitalization, Other)
  Sender: FDA-Public Use
  Company Number: CO-002147023-NVSC2022CO022131

PATIENT
  Age: 63 Year
  Sex: Female

DRUGS (2)
  1. LUCENTIS [Suspect]
     Active Substance: RANIBIZUMAB
     Indication: Age-related macular degeneration
     Route: 058
  2. LUCENTIS [Suspect]
     Active Substance: RANIBIZUMAB
     Route: 047

REACTIONS (6)
  - Blood glucose increased [Unknown]
  - Malaise [Unknown]
  - Blindness [Unknown]
  - Diabetes mellitus [Unknown]
  - Incorrect dose administered [Unknown]
  - Inappropriate schedule of product administration [Unknown]
